FAERS Safety Report 24873815 (Version 1)
Quarter: 2025Q1

REPORT INFORMATION
  Report Type: Spontaneous
  Country: CA (occurrence: CA)
  Receive Date: 20250122
  Receipt Date: 20250122
  Transmission Date: 20250408
  Serious: Yes (Hospitalization, Congenital Anomaly)
  Sender: MYLAN
  Company Number: CA-MYLANLABS-2025M1004544

PATIENT
  Sex: Male
  Weight: 3 kg

DRUGS (1)
  1. ISOTRETINOIN [Suspect]
     Active Substance: ISOTRETINOIN
     Indication: Acne
     Dosage: 40 MILLIGRAM, QD (1 EVERY 1 DAYS)
     Route: 048

REACTIONS (5)
  - Multiple congenital abnormalities [Not Recovered/Not Resolved]
  - Teratogenicity [Not Recovered/Not Resolved]
  - Selective eating disorder [Not Recovered/Not Resolved]
  - Accidental exposure to product [Not Recovered/Not Resolved]
  - Exposure during pregnancy [Not Recovered/Not Resolved]
